FAERS Safety Report 24897168 (Version 1)
Quarter: 2025Q1

REPORT INFORMATION
  Report Type: Spontaneous
  Country: PL (occurrence: PL)
  Receive Date: 20250128
  Receipt Date: 20250128
  Transmission Date: 20250409
  Serious: Yes (Hospitalization)
  Sender: NOVITIUM PHARMA
  Company Number: PL-NOVITIUMPHARMA-2025PLNVP00207

PATIENT
  Age: 74 Year
  Sex: Female

DRUGS (4)
  1. DEXAMETHASONE [Suspect]
     Active Substance: DEXAMETHASONE
     Indication: Immune thrombocytopenia
  2. ACALABRUTINIB [Concomitant]
     Active Substance: ACALABRUTINIB
     Indication: Chronic lymphocytic leukaemia
  3. Immune-globulin [Concomitant]
     Indication: Immune thrombocytopenia
  4. RITUXIMAB [Concomitant]
     Active Substance: RITUXIMAB
     Indication: Immune thrombocytopenia

REACTIONS (2)
  - Drug resistance [Unknown]
  - Drug ineffective [Unknown]
